FAERS Safety Report 5140181-8 (Version None)
Quarter: 2006Q4

REPORT INFORMATION
  Report Type: 
  Country: None (occurrence: None)
  Receive Date: 20061031
  Receipt Date: 20061019
  Transmission Date: 20070319
  Serious: Yes (Hospitalization)
  Sender: FDA-Public Use
  Company Number: FR-BRISTOL-MYERS SQUIBB COMPANY-13549001

PATIENT
  Age: 83 Year
  Sex: Male

DRUGS (8)
  1. COAPROVEL [Suspect]
     Indication: HYPERTENSION
     Route: 048
     Dates: end: 20060913
  2. XATRAL [Suspect]
     Route: 048
     Dates: end: 20060913
  3. FELDENE [Suspect]
     Route: 048
     Dates: end: 20060913
  4. ADANCOR [Concomitant]
  5. INIPOMP [Concomitant]
  6. MONO-TILDIEM [Concomitant]
  7. PROSCAR [Concomitant]
  8. ALLOPURINOL [Concomitant]

REACTIONS (6)
  - ABDOMINAL PAIN [None]
  - BLOOD CREATINE PHOSPHOKINASE INCREASED [None]
  - DIARRHOEA [None]
  - MYALGIA [None]
  - RENAL FAILURE [None]
  - RHABDOMYOLYSIS [None]
